FAERS Safety Report 9508714 (Version 3)
Quarter: 2013Q4

REPORT INFORMATION
  Report Type: Report from Study
  Country: AU (occurrence: AU)
  Receive Date: 20130909
  Receipt Date: 20131014
  Transmission Date: 20140711
  Serious: Yes (Other)
  Sender: FDA-Public Use
  Company Number: AU-GLAXOSMITHKLINE-B0920585A

PATIENT
  Age: 26 Year
  Sex: Male

DRUGS (1)
  1. DABRAFENIB [Suspect]
     Indication: MALIGNANT MELANOMA
     Route: 065

REACTIONS (3)
  - Melanoma recurrent [Not Recovered/Not Resolved]
  - Pericardial effusion [Recovering/Resolving]
  - Drug ineffective [Unknown]
